FAERS Safety Report 23500052 (Version 1)
Quarter: 2024Q1

REPORT INFORMATION
  Report Type: Spontaneous
  Country: GB (occurrence: GB)
  Receive Date: 20240208
  Receipt Date: 20240208
  Transmission Date: 20240410
  Serious: No
  Sender: FDA-Public Use
  Company Number: None

PATIENT
  Sex: Female

DRUGS (1)
  1. CEPHALEXIN [Suspect]
     Active Substance: CEPHALEXIN
     Indication: Sinusitis
     Dosage: 500 MILLIGRAM
     Route: 065

REACTIONS (4)
  - Abdominal discomfort [Unknown]
  - Bladder disorder [Unknown]
  - Lactose intolerance [Unknown]
  - Rhinorrhoea [Unknown]
